FAERS Safety Report 13332540 (Version 1)
Quarter: 2017Q1

REPORT INFORMATION
  Report Type: Spontaneous
  Country: RU (occurrence: RU)
  Receive Date: 20170314
  Receipt Date: 20170314
  Transmission Date: 20170428
  Serious: Yes (Other)
  Sender: FDA-Public Use
  Company Number: RU-TEVA-746937ISR

PATIENT
  Age: 9 Year
  Sex: Male

DRUGS (7)
  1. SUMAMED FORTE [Suspect]
     Active Substance: AZITHROMYCIN ANHYDROUS
     Indication: RESPIRATORY TRACT INFECTION VIRAL
     Dosage: 200MG/5ML
     Route: 065
     Dates: start: 20161007, end: 20161010
  2. CHLORHEXIDINE [Suspect]
     Active Substance: CHLORHEXIDINE
     Indication: NASOPHARYNGITIS
     Dosage: TREATMENT OF THE OROPHARYNX
  3. PANAVIR INLIGHT [Suspect]
     Active Substance: HERBALS
     Indication: RESPIRATORY TRACT INFECTION VIRAL
     Route: 065
  4. ISOFRA [Suspect]
     Active Substance: FRAMYCETIN SULFATE
     Indication: RESPIRATORY TRACT INFECTION VIRAL
     Route: 065
  5. AMIXIN [Suspect]
     Active Substance: TILORONE
     Indication: RESPIRATORY TRACT INFECTION VIRAL
     Route: 065
     Dates: start: 20161005
  6. CEFTRIAXONE. [Suspect]
     Active Substance: CEFTRIAXONE
     Indication: NASOPHARYNGITIS
     Dosage: 2000 IU (INTERNATIONAL UNIT) DAILY;
  7. SALINE SOLUTION [Suspect]
     Active Substance: SODIUM CHLORIDE
     Indication: NASOPHARYNGITIS
     Dosage: INHALATIONS

REACTIONS (6)
  - Duodenogastric reflux [Unknown]
  - Duodenitis [Unknown]
  - Chronic gastritis [Unknown]
  - Helicobacter gastritis [Unknown]
  - Gastritis [Unknown]
  - Sphincter of Oddi dysfunction [Unknown]
